FAERS Safety Report 9823020 (Version 2)
Quarter: 2014Q1

REPORT INFORMATION
  Report Type: Spontaneous
  Country: US (occurrence: US)
  Receive Date: 20140116
  Receipt Date: 20140116
  Transmission Date: 20141002
  Serious: No
  Sender: FDA-Public Use
  Company Number: US-GILEAD-2011-0034964

PATIENT
  Age: 62 Year
  Sex: Female

DRUGS (11)
  1. LETAIRIS [Suspect]
     Indication: PULMONARY HYPERTENSION
     Route: 048
     Dates: start: 20100409, end: 20101201
  2. LETAIRIS [Suspect]
     Indication: SLEEP APNOEA SYNDROME
  3. SILDENAFIL CITRATE [Concomitant]
  4. NEBIVOLOL HCL [Concomitant]
  5. ASPIRIN [Concomitant]
  6. WARFARIN SODIUM [Concomitant]
  7. TELMISARTAN [Concomitant]
  8. POTASSIUM CHLORIDE [Concomitant]
  9. FUROSEMIDE [Concomitant]
  10. OMEPRAZOLE [Concomitant]
  11. FEXOFENADINE HCL [Concomitant]

REACTIONS (1)
  - Fatigue [Unknown]
